FAERS Safety Report 23850223 (Version 1)
Quarter: 2024Q2

REPORT INFORMATION
  Report Type: Spontaneous
  Country: CA (occurrence: CA)
  Receive Date: 20240513
  Receipt Date: 20240513
  Transmission Date: 20240716
  Serious: Yes (Other)
  Sender: FDA-Public Use
  Company Number: CA-SANDOZ-SDZ2024CA047737

PATIENT
  Age: 15 Year
  Sex: Male
  Weight: 127 kg

DRUGS (48)
  1. CLONIDINE [Suspect]
     Active Substance: CLONIDINE
     Indication: Intellectual disability
     Dosage: 0.1 MG, BID
     Route: 065
  2. CLONIDINE [Suspect]
     Active Substance: CLONIDINE
     Indication: Autism spectrum disorder
     Dosage: 0.1 MG
     Route: 065
  3. CLONIDINE [Suspect]
     Active Substance: CLONIDINE
     Dosage: 1.0 MG, BID
     Route: 065
  4. CLONIDINE [Suspect]
     Active Substance: CLONIDINE
     Indication: Behaviour disorder
     Dosage: UNK, BID
     Route: 065
  5. CLONIDINE [Suspect]
     Active Substance: CLONIDINE
     Indication: Product used for unknown indication
     Dosage: UNK
     Route: 065
  6. LAMOTRIGINE [Suspect]
     Active Substance: LAMOTRIGINE
     Indication: Autism spectrum disorder
     Dosage: 25.0 MG, QD
     Route: 065
  7. LAMOTRIGINE [Suspect]
     Active Substance: LAMOTRIGINE
     Indication: Behaviour disorder
     Dosage: 25.0 MG, QD
     Route: 065
  8. LAMOTRIGINE [Suspect]
     Active Substance: LAMOTRIGINE
     Indication: Behavioural therapy
     Dosage: 25.0 MG, BID
     Route: 065
  9. SERTRALINE HYDROCHLORIDE [Suspect]
     Active Substance: SERTRALINE HYDROCHLORIDE
     Indication: Autism spectrum disorder
     Dosage: 100 MG, QD
     Route: 065
  10. SERTRALINE HYDROCHLORIDE [Suspect]
     Active Substance: SERTRALINE HYDROCHLORIDE
     Indication: Intellectual disability
     Dosage: 100 MG, QD
     Route: 065
  11. SERTRALINE HYDROCHLORIDE [Suspect]
     Active Substance: SERTRALINE HYDROCHLORIDE
     Dosage: 100 MG, QD
     Route: 065
  12. SERTRALINE HYDROCHLORIDE [Suspect]
     Active Substance: SERTRALINE HYDROCHLORIDE
     Dosage: 100 MG, QD
     Route: 065
  13. SERTRALINE HYDROCHLORIDE [Suspect]
     Active Substance: SERTRALINE HYDROCHLORIDE
     Dosage: 100 MG, QD
     Route: 065
  14. SERTRALINE HYDROCHLORIDE [Suspect]
     Active Substance: SERTRALINE HYDROCHLORIDE
     Dosage: 100 MG, QD
     Route: 065
  15. SERTRALINE HYDROCHLORIDE [Suspect]
     Active Substance: SERTRALINE HYDROCHLORIDE
     Dosage: 100 MG, QD
     Route: 065
  16. SERTRALINE HYDROCHLORIDE [Suspect]
     Active Substance: SERTRALINE HYDROCHLORIDE
     Dosage: 100 MG, QD
     Route: 065
  17. SERTRALINE HYDROCHLORIDE [Suspect]
     Active Substance: SERTRALINE HYDROCHLORIDE
     Dosage: 100 MG, QD
     Route: 065
  18. SERTRALINE HYDROCHLORIDE [Suspect]
     Active Substance: SERTRALINE HYDROCHLORIDE
     Indication: Behaviour disorder
     Dosage: UNK, QD
     Route: 065
  19. OLANZAPINE [Suspect]
     Active Substance: OLANZAPINE
     Indication: Intellectual disability
     Dosage: 10 MG, BID
     Route: 065
  20. OLANZAPINE [Suspect]
     Active Substance: OLANZAPINE
     Dosage: 10 MG, BID
     Route: 065
  21. OLANZAPINE [Suspect]
     Active Substance: OLANZAPINE
     Dosage: 10 MG, BID
     Route: 065
  22. OLANZAPINE [Suspect]
     Active Substance: OLANZAPINE
     Dosage: 10 MG, BID
     Route: 065
  23. OLANZAPINE [Suspect]
     Active Substance: OLANZAPINE
     Dosage: 10 MG, BID
     Route: 065
  24. OLANZAPINE [Suspect]
     Active Substance: OLANZAPINE
     Dosage: 10 MG
     Route: 065
  25. OLANZAPINE [Suspect]
     Active Substance: OLANZAPINE
     Indication: Behaviour disorder
     Dosage: 50 MG
     Route: 065
  26. OLANZAPINE [Suspect]
     Active Substance: OLANZAPINE
     Indication: Autism spectrum disorder
     Dosage: UNK, BID
     Route: 065
  27. OLANZAPINE [Suspect]
     Active Substance: OLANZAPINE
     Dosage: UNK
     Route: 065
  28. QUETIAPINE FUMARATE [Suspect]
     Active Substance: QUETIAPINE FUMARATE
     Indication: Behaviour disorder
     Dosage: 50 MG, QD
     Route: 048
  29. QUETIAPINE FUMARATE [Suspect]
     Active Substance: QUETIAPINE FUMARATE
     Dosage: 50 MG, QD
     Route: 048
  30. QUETIAPINE FUMARATE [Suspect]
     Active Substance: QUETIAPINE FUMARATE
     Dosage: 50 MG, QD
     Route: 048
  31. QUETIAPINE FUMARATE [Suspect]
     Active Substance: QUETIAPINE FUMARATE
     Dosage: 50 MG, QD
     Route: 048
  32. QUETIAPINE FUMARATE [Suspect]
     Active Substance: QUETIAPINE FUMARATE
     Dosage: 50 MG, QD
     Route: 048
  33. QUETIAPINE FUMARATE [Suspect]
     Active Substance: QUETIAPINE FUMARATE
     Indication: Intellectual disability
     Dosage: 500 MG, QD
     Route: 048
  34. QUETIAPINE FUMARATE [Suspect]
     Active Substance: QUETIAPINE FUMARATE
     Dosage: 500 MG, QD
     Route: 048
  35. QUETIAPINE FUMARATE [Suspect]
     Active Substance: QUETIAPINE FUMARATE
     Dosage: 500 MG, QD
     Route: 048
  36. QUETIAPINE FUMARATE [Suspect]
     Active Substance: QUETIAPINE FUMARATE
     Dosage: 500 MG, QD
     Route: 048
  37. QUETIAPINE FUMARATE [Suspect]
     Active Substance: QUETIAPINE FUMARATE
     Dosage: 500 MG, QD
     Route: 048
  38. QUETIAPINE FUMARATE [Suspect]
     Active Substance: QUETIAPINE FUMARATE
     Dosage: 500 MG, QD
     Route: 048
  39. QUETIAPINE FUMARATE [Suspect]
     Active Substance: QUETIAPINE FUMARATE
     Indication: Autism spectrum disorder
     Dosage: UNK
     Route: 048
  40. ZIPRASIDONE [Suspect]
     Active Substance: ZIPRASIDONE
     Indication: Intellectual disability
     Dosage: 40 MG, BID
     Route: 065
  41. ZIPRASIDONE [Suspect]
     Active Substance: ZIPRASIDONE
     Dosage: 40 MG, BID
     Route: 065
  42. ZIPRASIDONE [Suspect]
     Active Substance: ZIPRASIDONE
     Dosage: 40 MG, BID
     Route: 065
  43. ZIPRASIDONE [Suspect]
     Active Substance: ZIPRASIDONE
     Dosage: 40 MG, BID
     Route: 065
  44. ZIPRASIDONE [Suspect]
     Active Substance: ZIPRASIDONE
     Dosage: 40 MG, BID
     Route: 065
  45. ZIPRASIDONE [Suspect]
     Active Substance: ZIPRASIDONE
     Dosage: 40 MG, BID
     Route: 065
  46. ZIPRASIDONE [Suspect]
     Active Substance: ZIPRASIDONE
     Dosage: 40 MG, BID
     Route: 065
  47. ZIPRASIDONE [Suspect]
     Active Substance: ZIPRASIDONE
     Indication: Autism spectrum disorder
     Dosage: 40 MG
     Route: 065
  48. ZIPRASIDONE [Suspect]
     Active Substance: ZIPRASIDONE
     Indication: Behaviour disorder
     Dosage: UNK
     Route: 065

REACTIONS (8)
  - Aggression [Recovered/Resolved]
  - Obesity [Recovered/Resolved]
  - Overweight [Recovered/Resolved]
  - Blood prolactin increased [Recovered/Resolved]
  - Drug ineffective [Recovered/Resolved]
  - Product prescribing issue [Recovered/Resolved]
  - Product use issue [Recovered/Resolved]
  - Off label use [Recovered/Resolved]
